FAERS Safety Report 7804172-8 (Version None)
Quarter: 2011Q4

REPORT INFORMATION
  Report Type: 
  Country: None (occurrence: None)
  Receive Date: 20111010
  Receipt Date: 20111007
  Transmission Date: 20120403
  Serious: Yes (Hospitalization)
  Sender: FDA-Public Use
  Company Number: RO-JNJFOC-20110911775

PATIENT
  Sex: Male

DRUGS (2)
  1. KETOPROFEN [Concomitant]
     Indication: ANKYLOSING SPONDYLITIS
     Dosage: INTERMITTENT DOSE
     Route: 048
  2. REMICADE [Suspect]
     Indication: ANKYLOSING SPONDYLITIS
     Route: 042
     Dates: start: 20100601, end: 20110601

REACTIONS (1)
  - RENAL FAILURE CHRONIC [None]
